FAERS Safety Report 9452889 (Version 1)
Quarter: 2013Q3

REPORT INFORMATION
  Report Type: Spontaneous
  Country: AU (occurrence: AU)
  Receive Date: 20130812
  Receipt Date: 20130812
  Transmission Date: 20140515
  Serious: Yes (Life-Threatening)
  Sender: FDA-Public Use
  Company Number: AU-PFIZER INC-2013231876

PATIENT
  Age: 64 Year
  Sex: Male

DRUGS (2)
  1. TAZOCIN EF [Suspect]
     Dosage: UNK
     Route: 042
     Dates: start: 20090615, end: 20090618
  2. VANCOMYCIN [Suspect]
     Dosage: 1 G, 2 TIMES
     Route: 042
     Dates: start: 20090615, end: 20090617

REACTIONS (2)
  - Renal failure acute [Recovered/Resolved with Sequelae]
  - Ischaemic hepatitis [Recovered/Resolved with Sequelae]
